FAERS Safety Report 4761090-X (Version None)
Quarter: 2005Q3

REPORT INFORMATION
  Report Type: 
  Country: None (occurrence: None)
  Receive Date: 20050901
  Receipt Date: 20050822
  Transmission Date: 20060218
  Serious: Yes (Hospitalization)
  Sender: FDA-Public Use
  Company Number: 2005JP001659

PATIENT
  Age: 64 Year
  Sex: Female

DRUGS (2)
  1. FUNGUARD (MICAFUNGIN) INJECTION [Suspect]
     Indication: PYREXIA
     Dosage: 150.00 MG, /D, IV DRIP
     Route: 041
     Dates: start: 20050607, end: 20050627
  2. MEROPEN (MEROPENEM) [Concomitant]

REACTIONS (1)
  - PANCYTOPENIA [None]
